FAERS Safety Report 9367327 (Version 1)
Quarter: 2013Q2

REPORT INFORMATION
  Report Type: Spontaneous
  Country: US (occurrence: US)
  Receive Date: 20130625
  Receipt Date: 20130625
  Transmission Date: 20140414
  Serious: No
  Sender: FDA-Public Use
  Company Number: US-009507513-1306USA009297

PATIENT
  Age: 26 Year
  Sex: Female

DRUGS (2)
  1. NUVARING [Suspect]
     Indication: CONTRACEPTION
     Dosage: 0.120 MG/0.015 MG
     Route: 067
     Dates: start: 200801
  2. NUVARING [Suspect]
     Dosage: 0.120 MG/0.015 MG
     Route: 067
     Dates: start: 20130611

REACTIONS (2)
  - Metrorrhagia [Not Recovered/Not Resolved]
  - Inappropriate schedule of drug administration [Unknown]
